FAERS Safety Report 6788907-1 (Version None)
Quarter: 2010Q2

REPORT INFORMATION
  Report Type: 
  Country: None (occurrence: None)
  Receive Date: 20100623
  Receipt Date: 20080610
  Transmission Date: 20101027
  Serious: No
  Sender: FDA-Public Use
  Company Number: US-PFIZER INC-2008049309

PATIENT
  Sex: Female
  Weight: 125 kg

DRUGS (3)
  1. GEODON [Suspect]
     Indication: MOOD ALTERED
     Dates: start: 20030901
  2. EFFEXOR [Concomitant]
  3. LEXAPRO [Concomitant]

REACTIONS (1)
  - ELECTROCARDIOGRAM QT PROLONGED [None]
